FAERS Safety Report 24651655 (Version 8)
Quarter: 2025Q4

REPORT INFORMATION
  Report Type: Report from Study
  Country: JP (occurrence: JP)
  Receive Date: 20241122
  Receipt Date: 20251014
  Transmission Date: 20260118
  Serious: Yes (Death, Hospitalization, Other)
  Sender: ROCHE
  Company Number: JP-CHUGAI-2024037093

PATIENT
  Age: 81 Year
  Sex: Female

DRUGS (7)
  1. PIASKY [Suspect]
     Active Substance: CROVALIMAB-AKKZ
     Indication: Paroxysmal nocturnal haemoglobinuria
     Route: 058
     Dates: start: 20241007
  2. PIASKY [Suspect]
     Active Substance: CROVALIMAB-AKKZ
     Route: 058
     Dates: start: 20241008, end: 20241028
  3. PIASKY [Suspect]
     Active Substance: CROVALIMAB-AKKZ
     Dosage: MOST RECENT DOSE ON 05-NOV-2024
     Route: 058
     Dates: start: 20241105
  4. VOYDEYA [Suspect]
     Active Substance: DANICOPAN
     Indication: Paroxysmal nocturnal haemoglobinuria
     Dosage: UNK
     Route: 065
  5. VOYDEYA [Suspect]
     Active Substance: DANICOPAN
     Route: 065
  6. LETROZOLE [Concomitant]
     Active Substance: LETROZOLE
     Indication: Breast cancer
     Dosage: UNK
     Route: 050
  7. LETROZOLE [Concomitant]
     Active Substance: LETROZOLE
     Route: 048

REACTIONS (5)
  - Interstitial lung disease [Fatal]
  - Cardiac failure [Not Recovered/Not Resolved]
  - Type III immune complex mediated reaction [Recovered/Resolved]
  - Haemoglobin decreased [Recovered/Resolved]
  - Refusal of treatment by patient [Unknown]

NARRATIVE: CASE EVENT DATE: 20241017
